FAERS Safety Report 6596263-7 (Version None)
Quarter: 2010Q1

REPORT INFORMATION
  Report Type: 
  Country: None (occurrence: None)
  Receive Date: 20100223
  Receipt Date: 20100215
  Transmission Date: 20100710
  Serious: Yes (Other)
  Sender: FDA-Public Use
  Company Number: US-ROCHE-686217

PATIENT
  Sex: Male

DRUGS (2)
  1. VALGANCICLOVIR HCL [Suspect]
     Indication: DRUG USE FOR UNKNOWN INDICATION
     Dosage: TEMPORARILY INTERRUPTED
     Route: 065
     Dates: start: 20091001
  2. MYCOPHENOLATE MOFETIL [Suspect]
     Indication: DRUG USE FOR UNKNOWN INDICATION
     Dosage: TEMPORARILY INTERRUPTED
     Route: 065
     Dates: start: 20091001

REACTIONS (1)
  - BK VIRUS INFECTION [None]
